FAERS Safety Report 4820689-2 (Version None)
Quarter: 2005Q4

REPORT INFORMATION
  Report Type: 
  Country: None (occurrence: None)
  Receive Date: 20051103
  Receipt Date: 20051024
  Transmission Date: 20060501
  Serious: Yes (Death)
  Sender: FDA-Public Use
  Company Number: 2005-DE-04420GD

PATIENT

DRUGS (3)
  1. MORPHINE [Suspect]
  2. NORDIAZEPAM (NORDIAZEPAM) [Suspect]
  3. OXCARBAZEPINE [Suspect]

REACTIONS (2)
  - CHEST INJURY [None]
  - NARCOTIC INTOXICATION [None]
